FAERS Safety Report 24194000 (Version 1)
Quarter: 2024Q3

REPORT INFORMATION
  Report Type: Report from Study
  Country: US (occurrence: US)
  Receive Date: 20240809
  Receipt Date: 20240809
  Transmission Date: 20241017
  Serious: Yes (Other)
  Sender: BAYER
  Company Number: US-BAYER-2024A084313

PATIENT
  Age: 88 Year
  Sex: Female
  Weight: 73.016 kg

DRUGS (18)
  1. ADEMPAS [Suspect]
     Active Substance: RIOCIGUAT
     Indication: Pulmonary arterial hypertension
     Dosage: UNK
     Route: 048
     Dates: start: 20220615
  2. ADEMPAS [Suspect]
     Active Substance: RIOCIGUAT
     Indication: Pulmonary arterial hypertension
     Dosage: 1.5 MG, TID
     Route: 048
  3. ADEMPAS [Suspect]
     Active Substance: RIOCIGUAT
     Indication: Pulmonary arterial hypertension
     Dosage: 1 MG, TID
     Route: 048
  4. ADEMPAS [Suspect]
     Active Substance: RIOCIGUAT
     Indication: Pulmonary arterial hypertension
     Dosage: 0.5 MG
     Route: 048
  5. ATORVASTATIN CALCIUM [Concomitant]
     Active Substance: ATORVASTATIN CALCIUM
  6. NIFEDIPINE [Concomitant]
     Active Substance: NIFEDIPINE
  7. ELIQUIS [Concomitant]
     Active Substance: APIXABAN
  8. ESTRADIOL [Concomitant]
     Active Substance: ESTRADIOL
  9. PANTOPRAZOLE SODIUM [Concomitant]
     Active Substance: PANTOPRAZOLE SODIUM
  10. OXCARBAZEPINE [Concomitant]
     Active Substance: OXCARBAZEPINE
  11. ALBUTEROL SULFATE [Concomitant]
     Active Substance: ALBUTEROL SULFATE
  12. CALCIUM\CHOLECALCIFEROL [Concomitant]
     Active Substance: CALCIUM\CHOLECALCIFEROL
  13. SYSTANE COMPLETE [Concomitant]
     Active Substance: PROPYLENE GLYCOL
  14. MAGNESIUM [Concomitant]
     Active Substance: MAGNESIUM
  15. ASPIRIN [Concomitant]
     Active Substance: ASPIRIN
  16. BETAMETHASONE VALERATE [Concomitant]
     Active Substance: BETAMETHASONE VALERATE
  17. GABAPENTIN [Concomitant]
     Active Substance: GABAPENTIN
  18. ZYRTEC [Concomitant]
     Active Substance: CETIRIZINE HYDROCHLORIDE

REACTIONS (9)
  - Blood pressure diastolic decreased [None]
  - Syncope [None]
  - Asthenia [None]
  - Feeling abnormal [None]
  - Dizziness [None]
  - Blood pressure decreased [Not Recovered/Not Resolved]
  - Dyspnoea [None]
  - Blood pressure decreased [None]
  - Tremor [None]

NARRATIVE: CASE EVENT DATE: 20240514
